FAERS Safety Report 21778865 (Version 1)
Quarter: 2022Q4

REPORT INFORMATION
  Report Type: Spontaneous
  Country: FR (occurrence: FR)
  Receive Date: 20221226
  Receipt Date: 20221226
  Transmission Date: 20230113
  Serious: Yes (Death, Other)
  Sender: FDA-Public Use
  Company Number: FR-HALOCARBON LIFE SCIENCES, LLC-20221200028

PATIENT
  Age: 11 Month

DRUGS (1)
  1. SEVOFLURANE [Suspect]
     Active Substance: SEVOFLURANE
     Indication: Anaesthesia
     Dosage: UNK, UNKNOWN

REACTIONS (2)
  - Death [Fatal]
  - Hepatotoxicity [Unknown]
